FAERS Safety Report 4996464-5 (Version None)
Quarter: 2006Q2

REPORT INFORMATION
  Report Type: 
  Country: None (occurrence: None)
  Receive Date: 20060509
  Receipt Date: 20051026
  Transmission Date: 20061013
  Serious: Yes (Other)
  Sender: FDA-Public Use
  Company Number: US-AVENTIS-200518712US

PATIENT
  Age: 16 Year
  Sex: Male
  Weight: 144 kg

DRUGS (2)
  1. DDAVP [Suspect]
     Indication: DIABETES INSIPIDUS
  2. DDAVP [Suspect]

REACTIONS (1)
  - THROMBOSIS [None]
